FAERS Safety Report 8250479-2 (Version None)
Quarter: 2012Q2

REPORT INFORMATION
  Report Type: 
  Country: None (occurrence: None)
  Receive Date: 20120402
  Receipt Date: 20120402
  Transmission Date: 20120825
  Serious: No
  Sender: FDA-Public Use
  Company Number: None

PATIENT
  Sex: Female
  Weight: 11 kg

DRUGS (1)
  1. RITUXIMAB [Suspect]
     Indication: JUVENILE CHRONIC MYELOMONOCYTIC LEUKAEMIA
     Dosage: 230MG
     Route: 040
     Dates: start: 20120211, end: 20120309

REACTIONS (1)
  - GASTROINTESTINAL HAEMORRHAGE [None]
